FAERS Safety Report 4961512-5 (Version None)
Quarter: 2006Q1

REPORT INFORMATION
  Report Type: 
  Country: None (occurrence: None)
  Receive Date: 20060329
  Receipt Date: 20060316
  Transmission Date: 20060701
  Serious: Yes (Hospitalization, Other)
  Sender: FDA-Public Use
  Company Number: 2006AL000743

PATIENT
  Age: 70 Year
  Sex: Female

DRUGS (4)
  1. DICLOFENAC SODIUM [Suspect]
  2. AMOXICILLIN + CLAVULANATE POTASSIUM [Concomitant]
  3. ACETAMINOPHEN [Concomitant]
  4. LEVOTHYROXINE SODIUM [Concomitant]

REACTIONS (4)
  - DYSAESTHESIA [None]
  - SKIN HYPERPIGMENTATION [None]
  - SKIN HYPOPIGMENTATION [None]
  - TOXIC EPIDERMAL NECROLYSIS [None]
